FAERS Safety Report 9210943 (Version 1)
Quarter: 2013Q2

REPORT INFORMATION
  Report Type: Spontaneous
  Country: US (occurrence: US)
  Receive Date: 20130404
  Receipt Date: 20130404
  Transmission Date: 20140414
  Serious: No
  Sender: FDA-Public Use
  Company Number: US-009507513-1304USA000943

PATIENT
  Sex: Female

DRUGS (7)
  1. FOSAMAX [Suspect]
     Route: 048
  2. CALCIUM (UNSPECIFIED) (+) VITAMIN D (UNSPECIFIED) [Concomitant]
     Dosage: 1 DF, BID
     Route: 048
  3. VITAMINS (UNSPECIFIED) [Concomitant]
     Route: 048
  4. TYLENOL ARTHRITIS PAIN [Concomitant]
     Route: 048
  5. CYANOCOBALAMIN [Concomitant]
     Route: 048
  6. ASPIR-81 [Concomitant]
     Route: 048
  7. CADUET [Suspect]

REACTIONS (4)
  - Hypertension [Unknown]
  - Drug hypersensitivity [Unknown]
  - Arthralgia [Unknown]
  - Depression [Unknown]
